FAERS Safety Report 4450631-8 (Version None)
Quarter: 2004Q3

REPORT INFORMATION
  Report Type: 
  Country: None (occurrence: None)
  Receive Date: 20040913
  Receipt Date: 20040603
  Transmission Date: 20050211
  Serious: No
  Sender: FDA-Public Use
  Company Number: 2004-BP-04388BP(0)

PATIENT
  Age: 71 Year
  Sex: Female

DRUGS (9)
  1. SPIRIVA [Suspect]
     Indication: CHRONIC OBSTRUCTIVE AIRWAYS DISEASE
     Dosage: 19 MCG (18 MCG), IH
     Route: 055
     Dates: start: 20030101
  2. SEREVENT [Concomitant]
  3. ALBUTEROL [Concomitant]
  4. OXYGEN (OXYGEN) [Concomitant]
  5. UNIPHYL [Concomitant]
  6. DIGOXI (DIGOXIN) [Concomitant]
  7. XALATAN [Concomitant]
  8. AESOPT [Concomitant]
  9. ASPIRIN [Concomitant]

REACTIONS (2)
  - ATRIAL FIBRILLATION [None]
  - VISION BLURRED [None]
